FAERS Safety Report 7120752-X (Version None)
Quarter: 2010Q4

REPORT INFORMATION
  Report Type: 
  Country: None (occurrence: None)
  Receive Date: 20101119
  Receipt Date: 20101119
  Transmission Date: 20110411
  Serious: No
  Sender: FDA-Public Use
  Company Number: None

PATIENT
  Sex: Female
  Weight: 56.6996 kg

DRUGS (1)
  1. EFFER-K 20 MEQ NOMAX [Suspect]
     Dates: start: 20101116, end: 20101215

REACTIONS (1)
  - PRODUCT IDENTIFICATION NUMBER ISSUE [None]
